FAERS Safety Report 19274000 (Version 5)
Quarter: 2021Q3

REPORT INFORMATION
  Report Type: Spontaneous
  Country: US (occurrence: US)
  Receive Date: 20210519
  Receipt Date: 20210916
  Transmission Date: 20211014
  Serious: No
  Sender: FDA-Public Use
  Company Number: US-BIOGEN-2021BI01012287

PATIENT
  Sex: Female

DRUGS (3)
  1. TECFIDERA [Suspect]
     Active Substance: DIMETHYL FUMARATE
     Indication: MULTIPLE SCLEROSIS
     Dosage: TAKE 1 (120MG) CAPSULE BY MOUTH TWICE A DAY FOR 7 DAYS THEN INCREASE TO THE 240MG CAPSULE BY MOUT...
     Route: 048
  2. TECFIDERA [Suspect]
     Active Substance: DIMETHYL FUMARATE
     Route: 048
  3. TECFIDERA [Suspect]
     Active Substance: DIMETHYL FUMARATE
     Route: 065
     Dates: start: 20180910

REACTIONS (5)
  - Inappropriate schedule of product administration [Unknown]
  - Overdose [Unknown]
  - Multiple sclerosis [Unknown]
  - Pollakiuria [Unknown]
  - Chest pain [Unknown]
